FAERS Safety Report 4900629-8 (Version None)
Quarter: 2006Q1

REPORT INFORMATION
  Report Type: 
  Country: None (occurrence: None)
  Receive Date: 20060203
  Receipt Date: 20060123
  Transmission Date: 20060701
  Serious: Yes (Disabling)
  Sender: FDA-Public Use
  Company Number: IT-BRISTOL-MYERS SQUIBB COMPANY-13257340

PATIENT
  Age: 81 Year
  Sex: Male

DRUGS (5)
  1. VEPESID [Suspect]
     Indication: SMALL CELL LUNG CANCER STAGE UNSPECIFIED
     Route: 042
     Dates: start: 20050622, end: 20050722
  2. CARBOPLATIN [Suspect]
     Indication: SMALL CELL LUNG CANCER STAGE UNSPECIFIED
     Route: 042
     Dates: start: 20050629, end: 20050720
  3. DECADRON [Concomitant]
     Indication: PREMEDICATION
     Route: 042
  4. ZOFRAN [Concomitant]
     Indication: PREMEDICATION
     Route: 042
  5. RANIDIL [Concomitant]
     Indication: PREMEDICATION
     Route: 042

REACTIONS (2)
  - BLINDNESS [None]
  - SCOTOMA [None]
